FAERS Safety Report 6902038-9 (Version None)
Quarter: 2010Q3

REPORT INFORMATION
  Report Type: 
  Country: None (occurrence: None)
  Receive Date: 20100803
  Receipt Date: 20080408
  Transmission Date: 20110219
  Serious: No
  Sender: FDA-Public Use
  Company Number: US-PFIZER INC-2008014294

PATIENT
  Sex: Female

DRUGS (1)
  1. LYRICA [Suspect]

REACTIONS (10)
  - CHILLS [None]
  - DISORIENTATION [None]
  - DRUG DOSE OMISSION [None]
  - EATING DISORDER [None]
  - HYPERHIDROSIS [None]
  - INSOMNIA [None]
  - NAUSEA [None]
  - PAIN [None]
  - TREMOR [None]
  - WITHDRAWAL SYNDROME [None]
